FAERS Safety Report 11184802 (Version 5)
Quarter: 2018Q2

REPORT INFORMATION
  Report Type: Spontaneous
  Country: US (occurrence: US)
  Receive Date: 20150612
  Receipt Date: 20180516
  Transmission Date: 20180711
  Serious: Yes (Hospitalization, Other)
  Sender: FDA-Public Use
  Company Number: US-PFIZER INC-2015195463

PATIENT
  Age: 66 Year
  Sex: Female

DRUGS (17)
  1. CIPRO [Concomitant]
     Active Substance: CIPROFLOXACIN HYDROCHLORIDE
     Dosage: 500 MG, EVERY 12 HOURS
     Route: 048
  2. ZYRTEC [Concomitant]
     Active Substance: CETIRIZINE HYDROCHLORIDE
     Dosage: 10 MG, ONCE A DAY
     Route: 048
  3. COLACE [Concomitant]
     Active Substance: DOCUSATE SODIUM
     Dosage: 100 MG, 2 TIMES A DAY
     Route: 048
  4. MULTIVITAMIN /00097801/ [Concomitant]
     Active Substance: VITAMINS
     Dosage: 1 TABLET, ONCE A DAY
     Route: 048
  5. ATIVAN [Concomitant]
     Active Substance: LORAZEPAM
     Indication: ANXIETY
     Dosage: 1 MG, ONCE A DAY AS NEEDED
     Route: 048
  6. FERROUS GLUCONATE [Concomitant]
     Active Substance: FERROUS GLUCONATE
     Dosage: 324 MG, 2 TIMES A DAY
     Route: 048
  7. SARNA [Concomitant]
     Indication: PRURITUS
     Dosage: 1 APP TOPICALLY 3 TIMES A DAY AS NEEDED
     Route: 061
  8. HYDROXINE [Concomitant]
     Active Substance: HYDROXYZINE HYDROCHLORIDE
     Indication: PRURITUS
     Dosage: 25 MG, ONCE AS NEEDED
     Route: 048
  9. LOSARTAN. [Concomitant]
     Active Substance: LOSARTAN
     Dosage: 50 MG, ONCE A DAY
     Route: 048
  10. ALENDRONATE [Concomitant]
     Active Substance: ALENDRONATE SODIUM
     Dosage: 70 MG, EVERY WEEK
     Route: 048
  11. ASPIRIN 81 [Concomitant]
     Active Substance: ASPIRIN
     Dosage: 81 MG, ONCE A DAY
     Route: 048
  12. GEMFIBROZIL. [Concomitant]
     Active Substance: GEMFIBROZIL
     Dosage: 600 MG, 2 TIMES A DAY
     Route: 048
  13. ATENOLOL. [Concomitant]
     Active Substance: ATENOLOL
     Dosage: 25 MG, ONCE A DAY
     Route: 048
  14. CALCIUM + VITAMIN D [Concomitant]
     Active Substance: CALCIUM\VITAMIN D
     Dosage: 1 TABLET 3 TIMES A DAY
     Route: 048
  15. TRAMADOL. [Concomitant]
     Active Substance: TRAMADOL
     Indication: PAIN
     Dosage: 50 MG, EVERY 12 HOURS AS NEEDED
     Route: 048
  16. RAPAMUNE [Suspect]
     Active Substance: SIROLIMUS
     Indication: PROPHYLAXIS AGAINST TRANSPLANT REJECTION
     Dosage: 1 MG, UNK
     Route: 048
  17. CALCIUM CITRATE [Concomitant]
     Active Substance: CALCIUM CITRATE
     Dosage: 200 MG, 2 TIMES A DAY
     Route: 048

REACTIONS (4)
  - Fall [Unknown]
  - Lower limb fracture [Unknown]
  - Upper limb fracture [Unknown]
  - Product use in unapproved indication [Unknown]
